FAERS Safety Report 18107721 (Version 1)
Quarter: 2020Q3

REPORT INFORMATION
  Report Type: Spontaneous
  Country: CN (occurrence: CN)
  Receive Date: 20200804
  Receipt Date: 20200804
  Transmission Date: 20201103
  Serious: Yes (Death, Other)
  Sender: FDA-Public Use
  Company Number: CN-ROCHE-2650069

PATIENT
  Age: 48 Year
  Sex: Male

DRUGS (6)
  1. TEMOZOLOMIDE. [Concomitant]
     Active Substance: TEMOZOLOMIDE
  2. MABTHERA [Suspect]
     Active Substance: RITUXIMAB
     Indication: DIFFUSE LARGE B-CELL LYMPHOMA
     Route: 065
     Dates: start: 20171118
  3. FLUDARABINE [Concomitant]
     Active Substance: FLUDARABINE PHOSPHATE
  4. CYCLOPHOSPHAMIDE. [Concomitant]
     Active Substance: CYCLOPHOSPHAMIDE
  5. IBRUTINIB [Concomitant]
     Active Substance: IBRUTINIB
  6. METHOTREXATE. [Concomitant]
     Active Substance: METHOTREXATE

REACTIONS (16)
  - Anaemia [Unknown]
  - Pleural effusion [Unknown]
  - Pyrexia [Unknown]
  - Asthenia [Unknown]
  - Haemophagocytic lymphohistiocytosis [Unknown]
  - Nasopharyngeal cancer [Unknown]
  - Hyperpyrexia [Not Recovered/Not Resolved]
  - Haemangioma [Unknown]
  - Death [Fatal]
  - Chronic hepatitis B [Unknown]
  - Myelosuppression [Unknown]
  - Muscle strength abnormal [Unknown]
  - Cytopenia [Not Recovered/Not Resolved]
  - Viral test positive [Unknown]
  - Hepatic enzyme increased [Not Recovered/Not Resolved]
  - Hepatomegaly [Unknown]

NARRATIVE: CASE EVENT DATE: 20200225
